FAERS Safety Report 7419466-8 (Version None)
Quarter: 2011Q2

REPORT INFORMATION
  Report Type: 
  Country: None (occurrence: None)
  Receive Date: 20110413
  Receipt Date: 20110413
  Transmission Date: 20111010
  Serious: Yes (Hospitalization)
  Sender: FDA-Public Use
  Company Number: None

PATIENT
  Age: 83 Year
  Sex: Female
  Weight: 61.1 kg

DRUGS (9)
  1. CEFDINIR [Concomitant]
  2. FLUCONIZOLE [Concomitant]
  3. DECITABINE 0.2MG/KG 3X/WK [Suspect]
     Indication: MYELODYSPLASTIC SYNDROME
     Dosage: 20.15MG 1X/WK SUB-Q INJ.
     Route: 058
  4. DIGOXIN [Concomitant]
  5. DECITABINE 0.15MG/KG 1-2X/WK [Suspect]
  6. BA/BICARB [Concomitant]
  7. COLACE [Concomitant]
  8. HYDREA [Concomitant]
  9. METAROLOL [Concomitant]

REACTIONS (6)
  - ERYTHEMA [None]
  - NEUTROPHIL COUNT DECREASED [None]
  - ECCHYMOSIS [None]
  - INFLAMMATION [None]
  - PAIN IN EXTREMITY [None]
  - OEDEMA PERIPHERAL [None]
